FAERS Safety Report 5386991-3 (Version None)
Quarter: 2007Q3

REPORT INFORMATION
  Report Type: 
  Country: None (occurrence: None)
  Receive Date: 20070713
  Receipt Date: 20070710
  Transmission Date: 20080115
  Serious: Yes (Hospitalization)
  Sender: FDA-Public Use
  Company Number: DE-MERCK-0707DEU00003

PATIENT
  Age: 50 Year
  Sex: Male
  Weight: 82 kg

DRUGS (4)
  1. VYTORIN [Suspect]
     Indication: HYPERLIPIDAEMIA
     Route: 048
     Dates: start: 20060814, end: 20070322
  2. VYTORIN [Suspect]
     Route: 048
     Dates: start: 20070514, end: 20070611
  3. ZOPICLONE [Concomitant]
     Indication: SLEEP DISORDER
     Route: 065
     Dates: start: 20000101, end: 20070101
  4. BUDESONIDE AND FORMOTEROL FUMARATE [Concomitant]
     Indication: ASTHMA
     Dates: start: 20010101

REACTIONS (4)
  - EMPTY SELLA SYNDROME [None]
  - HYPERHIDROSIS [None]
  - LIPOMA [None]
  - OPTIC NEURITIS [None]
